FAERS Safety Report 9826397 (Version 1)
Quarter: 2014Q1

REPORT INFORMATION
  Report Type: Spontaneous
  Country: US (occurrence: US)
  Receive Date: 20140117
  Receipt Date: 20140117
  Transmission Date: 20141002
  Serious: No
  Sender: FDA-Public Use
  Company Number: US-BIOGENIDEC-2014BI001327

PATIENT
  Sex: Male

DRUGS (15)
  1. TECFIDERA [Suspect]
     Indication: PRODUCT USED FOR UNKNOWN INDICATION
     Route: 048
  2. TECFIDERA [Suspect]
     Indication: PRODUCT USED FOR UNKNOWN INDICATION
     Route: 048
  3. AMPYRA [Concomitant]
     Indication: PRODUCT USED FOR UNKNOWN INDICATION
  4. B COMPLEX [Concomitant]
  5. BIOTIN [Concomitant]
  6. CALCIUM PANTOTHENATE [Concomitant]
  7. CYANOCOBALAMIN [Concomitant]
  8. FOLIC ACID [Concomitant]
  9. NICOTINAMIDE [Concomitant]
  10. PYRIDOXINE HYDROCHLORIDE [Concomitant]
  11. RIBOFLAVIN [Concomitant]
  12. THIAMINE MONONITRATE [Concomitant]
  13. PROVIGIL [Concomitant]
  14. GABAPENTIN [Concomitant]
  15. BACLOFEN [Concomitant]

REACTIONS (3)
  - Defaecation urgency [Unknown]
  - Frequent bowel movements [Unknown]
  - Diarrhoea [Unknown]
